FAERS Safety Report 9671441 (Version 1)
Quarter: 2013Q4

REPORT INFORMATION
  Report Type: Spontaneous
  Country: US (occurrence: None)
  Receive Date: 20131105
  Receipt Date: 20131105
  Transmission Date: 20140711
  Serious: No
  Sender: FDA-Public Use
  Company Number: None

PATIENT
  Age: 39 Year
  Sex: Female
  Weight: 130.64 kg

DRUGS (2)
  1. MAKENA [Suspect]
     Indication: PREMATURE BABY
     Dosage: UNTIL THE BABY IS BORN
  2. MAKENA [Suspect]
     Indication: PROPHYLAXIS
     Dosage: UNTIL THE BABY IS BORN

REACTIONS (3)
  - Injection site rash [None]
  - Injection site pruritus [None]
  - Exposure during pregnancy [None]
